FAERS Safety Report 19048220 (Version 1)
Quarter: 2021Q1

REPORT INFORMATION
  Report Type: Spontaneous
  Country: GB (occurrence: GB)
  Receive Date: 20210324
  Receipt Date: 20210324
  Transmission Date: 20210420
  Serious: Yes (Other)
  Sender: FDA-Public Use
  Company Number: GB-JNJFOC-20210337335

PATIENT

DRUGS (1)
  1. DARZALEX [Suspect]
     Active Substance: DARATUMUMAB
     Indication: PLASMA CELL MYELOMA
     Dosage: 16 MG/KG IV WEEKLY (8 WEEKS (W)), FORTNIGHTLY (16W), MONTHLY THEREAFTER)
     Route: 042

REACTIONS (11)
  - Neuropathy peripheral [Unknown]
  - Fatigue [Unknown]
  - Dyspnoea [Unknown]
  - Decreased appetite [Unknown]
  - Infusion related reaction [Unknown]
  - Deafness [Unknown]
  - Bronchospasm [Unknown]
  - Glucose tolerance impaired [Unknown]
  - Pain [Unknown]
  - Constipation [Unknown]
  - Nausea [Unknown]
